FAERS Safety Report 8430841-5 (Version None)
Quarter: 2012Q2

REPORT INFORMATION
  Report Type: 
  Country: None (occurrence: None)
  Receive Date: 20120612
  Receipt Date: 20120604
  Transmission Date: 20120825
  Serious: Yes (Hospitalization)
  Sender: FDA-Public Use
  Company Number: US-JNJFOC-20120602514

PATIENT
  Sex: Female
  Weight: 71.22 kg

DRUGS (2)
  1. XARELTO [Suspect]
     Indication: CARDIAC DISORDER
     Route: 048
     Dates: start: 20120301, end: 20120501
  2. PAIN MEDICATION UNSPECIFIED [Suspect]
     Indication: PAIN
     Dates: start: 20120101

REACTIONS (3)
  - PARALYSIS [None]
  - WEIGHT DECREASED [None]
  - PAIN [None]
